FAERS Safety Report 6830748-0 (Version None)
Quarter: 2010Q3

REPORT INFORMATION
  Report Type: 
  Country: None (occurrence: None)
  Receive Date: 20100709
  Receipt Date: 20100709
  Transmission Date: 20110219
  Serious: Yes (Hospitalization)
  Sender: FDA-Public Use
  Company Number: None

PATIENT
  Age: 66 Year
  Sex: Male

DRUGS (1)
  1. OMEPRAZOLE [Suspect]
     Indication: STRESS ULCER
     Dates: start: 20100406, end: 20100416

REACTIONS (3)
  - BLOOD CREATININE INCREASED [None]
  - RENAL IMPAIRMENT [None]
  - TUBULOINTERSTITIAL NEPHRITIS [None]
